FAERS Safety Report 7469541-7 (Version None)
Quarter: 2011Q2

REPORT INFORMATION
  Report Type: 
  Country: None (occurrence: None)
  Receive Date: 20110510
  Receipt Date: 20110502
  Transmission Date: 20111010
  Serious: Yes (Other)
  Sender: FDA-Public Use
  Company Number: PHHY2010US77965

PATIENT
  Sex: Female

DRUGS (6)
  1. LISINOPRIL [Concomitant]
     Indication: HYPERTENSION
     Dosage: UNK
     Route: 048
  2. VITAMIN D [Concomitant]
     Dosage: UNK
     Route: 048
  3. GILENYA [Suspect]
     Indication: RELAPSING-REMITTING MULTIPLE SCLEROSIS
     Dosage: 0.5 MG DAILY
     Route: 048
     Dates: start: 20101102, end: 20101115
  4. BIOTIN [Concomitant]
     Dosage: UNK
     Route: 048
  5. NASACORT [Concomitant]
     Indication: HYPERSENSITIVITY
     Dosage: UNK
     Route: 048
  6. ZYRTEC [Concomitant]
     Indication: HYPERSENSITIVITY
     Dosage: UNK

REACTIONS (3)
  - EYE SWELLING [None]
  - VISION BLURRED [None]
  - RETINAL DISORDER [None]
